FAERS Safety Report 23990912 (Version 2)
Quarter: 2024Q3

REPORT INFORMATION
  Report Type: Spontaneous
  Country: JP (occurrence: JP)
  Receive Date: 20240619
  Receipt Date: 20240814
  Transmission Date: 20241016
  Serious: Yes (Other)
  Sender: ABBVIE
  Company Number: JP-ABBVIE-5806826

PATIENT
  Age: 81 Year
  Sex: Female

DRUGS (6)
  1. ALPHAGAN P [Suspect]
     Active Substance: BRIMONIDINE TARTRATE
     Indication: Glaucoma
     Dosage: LEFT EYE
     Route: 047
     Dates: start: 20240304, end: 20240621
  2. ALPHAGAN P [Suspect]
     Active Substance: BRIMONIDINE TARTRATE
     Indication: Ocular hypertension
     Dosage: OPHTHALMIC SOLUTION 0.1%
     Route: 047
     Dates: start: 20210201, end: 20240304
  3. ALPHAGAN P [Suspect]
     Active Substance: BRIMONIDINE TARTRATE
     Dosage: OPHTHALMIC SOLUTION 0.1%
     Route: 047
  4. OMIDENEPAG ISOPROPYL [Concomitant]
     Active Substance: OMIDENEPAG ISOPROPYL
     Indication: Ocular hypertension
     Dosage: BOTH EYES ?OPHTHALMIC SOLUTION 0.002%  BOTH EYES
     Route: 047
     Dates: start: 20200406
  5. HYALURONATE SODIUM [Suspect]
     Active Substance: HYALURONATE SODIUM
     Indication: Corneal epithelium defect
     Dosage: OPHTHALMIC SOLUTION 0.1%?RIGHT EYE
     Route: 047
     Dates: start: 20240329
  6. HYALURONATE SODIUM [Suspect]
     Active Substance: HYALURONATE SODIUM
     Indication: Corneal epithelium defect
     Route: 047

REACTIONS (4)
  - Ophthalmic herpes simplex [Not Recovered/Not Resolved]
  - Corneal erosion [Recovered/Resolved]
  - Keratopathy [Recovered/Resolved]
  - Corneal degeneration [Not Recovered/Not Resolved]

NARRATIVE: CASE EVENT DATE: 20230213
